FAERS Safety Report 9090604 (Version 1)
Quarter: 2013Q1

REPORT INFORMATION
  Report Type: Spontaneous
  Country: BR (occurrence: BR)
  Receive Date: 20130131
  Receipt Date: 20130131
  Transmission Date: 20140127
  Serious: Yes (Death, Hospitalization, Other)
  Sender: FDA-Public Use
  Company Number: PHHY2013BR008406

PATIENT
  Age: 85 None
  Sex: Male

DRUGS (3)
  1. FORASEQ [Suspect]
     Indication: DYSPNOEA
     Dosage: 1 DF, BID
     Dates: start: 2008
  2. PERSANTIN [Concomitant]
     Indication: RESPIRATORY DISORDER
     Dosage: 100 MG, QD
     Route: 048
     Dates: start: 2008
  3. DILTIAZEM [Concomitant]
     Indication: RESPIRATORY DISORDER
     Dosage: 60 MG, QD
     Route: 048
     Dates: start: 2008

REACTIONS (6)
  - Multi-organ failure [Fatal]
  - Diabetic foot [Fatal]
  - Skin lesion [Fatal]
  - Renal disorder [Unknown]
  - Hepatic lesion [Unknown]
  - Diabetes mellitus [Not Recovered/Not Resolved]
